FAERS Safety Report 7511404-2 (Version None)
Quarter: 2011Q2

REPORT INFORMATION
  Report Type: 
  Country: None (occurrence: None)
  Receive Date: 20110531
  Receipt Date: 20110517
  Transmission Date: 20111010
  Serious: Yes (Other)
  Sender: FDA-Public Use
  Company Number: PHFR2011GB02463

PATIENT
  Sex: Female

DRUGS (1)
  1. CLOZARIL [Suspect]
     Dosage: 500 MG, DAILY
     Route: 048
     Dates: start: 20040614, end: 20110401

REACTIONS (4)
  - WHITE BLOOD CELL COUNT DECREASED [None]
  - PSYCHOTIC DISORDER [None]
  - THROMBOCYTOPENIA [None]
  - NEUTROPHIL COUNT DECREASED [None]
